FAERS Safety Report 10381841 (Version 3)
Quarter: 2014Q4

REPORT INFORMATION
  Report Type: Spontaneous
  Country: US (occurrence: US)
  Receive Date: 20140813
  Receipt Date: 20141230
  Transmission Date: 20150528
  Serious: Yes (Other)
  Sender: FDA-Public Use
  Company Number: US-BAYER-2014-120459

PATIENT
  Age: 26 Year
  Sex: Female

DRUGS (1)
  1. MIRENA [Suspect]
     Active Substance: LEVONORGESTREL
     Indication: CONTRACEPTION
     Dosage: 20 MCG/24HR, CONT
     Route: 015
     Dates: start: 200906, end: 20140930

REACTIONS (9)
  - Vaginal discharge [None]
  - Embedded device [None]
  - Pain [None]
  - Device difficult to use [None]
  - Procedural pain [None]
  - Complication of device removal [None]
  - Procedural pain [Not Recovered/Not Resolved]
  - Device breakage [None]
  - Abdominal pain [None]

NARRATIVE: CASE EVENT DATE: 2014
